FAERS Safety Report 15719350 (Version 2)
Quarter: 2018Q4

REPORT INFORMATION
  Report Type: Spontaneous
  Country: GB (occurrence: GB)
  Receive Date: 20181213
  Receipt Date: 20181214
  Transmission Date: 20190205
  Serious: Yes (Death)
  Sender: FDA-Public Use
  Company Number: GB-INDIVIOR LIMITED-INDV-116335-2018

PATIENT
  Age: 45 Year
  Sex: Male

DRUGS (3)
  1. GLYCERYL TRINITRATE [Concomitant]
     Active Substance: NITROGLYCERIN
     Indication: PRODUCT USED FOR UNKNOWN INDICATION
     Dosage: 0.5 MG, QD
     Route: 048
     Dates: start: 19880301
  2. BENORAL                            /00244201/ [Concomitant]
     Indication: PRODUCT USED FOR UNKNOWN INDICATION
     Dosage: 500 MG, BID
     Route: 048
     Dates: start: 19891122, end: 19891122
  3. TEMGESIC 0.2 MG TABLET [Suspect]
     Active Substance: BUPRENORPHINE HYDROCHLORIDE
     Indication: PRODUCT USED FOR UNKNOWN INDICATION
     Dosage: 0.2 MG, BID
     Route: 048
     Dates: start: 19891122, end: 19891122

REACTIONS (2)
  - Circulatory collapse [Fatal]
  - Vomiting [Unknown]

NARRATIVE: CASE EVENT DATE: 19891122
